FAERS Safety Report 9870902 (Version 2)
Quarter: 2014Q1

REPORT INFORMATION
  Report Type: Spontaneous
  Country: CA (occurrence: CA)
  Receive Date: 20140205
  Receipt Date: 20140206
  Transmission Date: 20141002
  Serious: Yes (Death)
  Sender: FDA-Public Use
  Company Number: PHHY2014CA014144

PATIENT
  Age: 55 Year
  Sex: Female

DRUGS (6)
  1. ACLASTA [Suspect]
     Indication: OSTEOPOROSIS POSTMENOPAUSAL
     Dosage: 5 MG/100ML, UNK
     Route: 042
     Dates: start: 20120124
  2. ACLASTA [Suspect]
     Dosage: 5 MG/100ML, UNK
     Route: 042
     Dates: start: 20130304
  3. LEVOTHYROXINE [Concomitant]
     Dosage: 0.125 MG, MONDAY, WEDNESDAY AND FRIDAY
  4. LEVOTHYROXINE [Concomitant]
     Dosage: 0.1 MG, SATURDAY, SUNDAY, TUESDAY, THURSDAY
  5. CALCIUM [Concomitant]
     Dosage: UNK UKN, UNK
  6. VITAMIN D [Concomitant]
     Dosage: UNK UKN, UNK

REACTIONS (1)
  - Myocardial infarction [Fatal]
